FAERS Safety Report 23829842 (Version 1)
Quarter: 2024Q2

REPORT INFORMATION
  Report Type: Spontaneous
  Country: US (occurrence: US)
  Receive Date: 20240508
  Receipt Date: 20240508
  Transmission Date: 20240716
  Serious: No
  Sender: FDA-Public Use
  Company Number: US-ABBVIE-5742479

PATIENT

DRUGS (2)
  1. HUMIRA [Suspect]
     Active Substance: ADALIMUMAB
     Indication: Product used for unknown indication
     Route: 058
  2. COSENTYX [Suspect]
     Active Substance: SECUKINUMAB
     Indication: Product used for unknown indication
     Dosage: REQUIRED INJECTIONS EVERY TWO TO THREE WEEKS INSTEAD OF FOUR
     Route: 065

REACTIONS (4)
  - Psoriasis [Unknown]
  - Arthritis [Unknown]
  - Drug ineffective [Unknown]
  - Drug tolerance decreased [Unknown]
